FAERS Safety Report 5028181-X (Version None)
Quarter: 2006Q2

REPORT INFORMATION
  Report Type: 
  Country: None (occurrence: None)
  Receive Date: 20060609
  Receipt Date: 20060524
  Transmission Date: 20061013
  Serious: Yes (Hospitalization)
  Sender: FDA-Public Use
  Company Number: CAR_0067_2006

PATIENT
  Age: 80 Year
  Sex: Male
  Weight: 67.586 kg

DRUGS (3)
  1. DICLOFENAC [Suspect]
     Indication: ARTHRITIS
     Dosage: 75 MG QDAY PO
     Route: 048
     Dates: start: 20040201
  2. DICLOFENAC [Suspect]
     Indication: ARTHRITIS
     Dosage: 75 MG BID PO
     Route: 048
     Dates: start: 20040201
  3. INDERAL [Concomitant]

REACTIONS (9)
  - ABDOMINAL PAIN UPPER [None]
  - CONSTIPATION [None]
  - DIVERTICULUM [None]
  - DUODENAL ULCER [None]
  - GASTRIC ULCER [None]
  - HAEMORRHAGE [None]
  - LARGE INTESTINAL HAEMORRHAGE [None]
  - TREATMENT NONCOMPLIANCE [None]
  - ULCER HAEMORRHAGE [None]
